FAERS Safety Report 10491874 (Version 1)
Quarter: 2014Q4

REPORT INFORMATION
  Report Type: Spontaneous
  Country: US (occurrence: US)
  Receive Date: 20141002
  Receipt Date: 20141002
  Transmission Date: 20150528
  Serious: No
  Sender: FDA-Public Use
  Company Number: US-GLAXOSMITHKLINE-A1061357A

PATIENT
  Age: 47 Year
  Sex: Female

DRUGS (3)
  1. ADVAIR HFA [Suspect]
     Active Substance: FLUTICASONE PROPIONATE\SALMETEROL XINAFOATE
     Indication: CHRONIC OBSTRUCTIVE PULMONARY DISEASE
     Dosage: 1PUFF VARIABLE DOSE
     Route: 055
     Dates: start: 2013
  2. ALBUTEROL INHALER [Concomitant]
     Active Substance: ALBUTEROL
  3. XANAX [Concomitant]
     Active Substance: ALPRAZOLAM

REACTIONS (7)
  - Mouth swelling [Unknown]
  - Suffocation feeling [Recovered/Resolved]
  - Dyspnoea [Unknown]
  - Hypoaesthesia oral [Unknown]
  - Eye disorder [Unknown]
  - Swelling face [Unknown]
  - Face oedema [Unknown]

NARRATIVE: CASE EVENT DATE: 20140206
